FAERS Safety Report 20801056 (Version 1)
Quarter: 2022Q2

REPORT INFORMATION
  Report Type: Report from Study
  Country: MX (occurrence: MX)
  Receive Date: 20220509
  Receipt Date: 20220509
  Transmission Date: 20220720
  Serious: Yes (Hospitalization)
  Sender: FDA-Public Use
  Company Number: MX-NOVARTISPH-NVSC2022MX105677

PATIENT
  Sex: Female
  Weight: 25 kg

DRUGS (1)
  1. ELTROMBOPAG OLAMINE [Suspect]
     Active Substance: ELTROMBOPAG OLAMINE
     Indication: Immune thrombocytopenia
     Dosage: UNK
     Route: 048
     Dates: start: 202112, end: 202202

REACTIONS (3)
  - Malaise [Recovering/Resolving]
  - Platelet count decreased [Recovering/Resolving]
  - Swelling [Not Recovered/Not Resolved]
